FAERS Safety Report 15811792 (Version 2)
Quarter: 2019Q1

REPORT INFORMATION
  Report Type: Report from Study
  Country: CA (occurrence: CA)
  Receive Date: 20190111
  Receipt Date: 20190208
  Transmission Date: 20190417
  Serious: Yes (Other)
  Sender: FDA-Public Use
  Company Number: CA-BRISTOL-MYERS SQUIBB COMPANY-BMS-2018-120668

PATIENT
  Age: 52 Year
  Sex: Male

DRUGS (2)
  1. YERVOY [Suspect]
     Active Substance: IPILIMUMAB
     Indication: RENAL CELL CARCINOMA
     Dosage: 1 MG/ML, Q3WK
     Route: 042
     Dates: start: 20181116
  2. NIVOLUMAB [Suspect]
     Active Substance: NIVOLUMAB
     Indication: RENAL CELL CARCINOMA
     Dosage: 3 MG/KG, Q3WK
     Route: 042
     Dates: start: 20181116

REACTIONS (21)
  - Eye pain [Recovered/Resolved]
  - Dyspnoea [Recovering/Resolving]
  - Faeces discoloured [Unknown]
  - Irritability [Not Recovered/Not Resolved]
  - Somnolence [Unknown]
  - Gingival disorder [Unknown]
  - Generalised anxiety disorder [Unknown]
  - Headache [Recovered/Resolved]
  - Visual impairment [Unknown]
  - Musculoskeletal pain [Not Recovered/Not Resolved]
  - Scratch [Unknown]
  - Fatigue [Recovering/Resolving]
  - Dizziness [Not Recovered/Not Resolved]
  - Gingival pain [Not Recovered/Not Resolved]
  - Pruritus [Not Recovered/Not Resolved]
  - Abdominal pain [Recovering/Resolving]
  - Weight decreased [Unknown]
  - Insomnia [Recovered/Resolved]
  - Neuropathy peripheral [Recovering/Resolving]
  - Haemoptysis [Recovered/Resolved]
  - Haemorrhage [Unknown]

NARRATIVE: CASE EVENT DATE: 20181116
